FAERS Safety Report 5649069-7 (Version None)
Quarter: 2008Q1

REPORT INFORMATION
  Report Type: 
  Country: None (occurrence: None)
  Receive Date: 20080229
  Receipt Date: 20080209
  Transmission Date: 20080703
  Serious: Yes (Other)
  Sender: FDA-Public Use
  Company Number: CIO8002368

PATIENT
  Age: 42 Month
  Sex: Male
  Weight: 19 kg

DRUGS (1)
  1. ORAL-B STAGES ANTICAVITY TOOTHPASTE, FLAVOR UNKNOWN(SODIUM FLUORIDE 0. [Suspect]
     Dosage: 1 ONLY FOR 1 DAY, ORAL
     Route: 048
     Dates: start: 20080208, end: 20080208

REACTIONS (2)
  - ACCIDENTAL DRUG INTAKE BY CHILD [None]
  - PYREXIA [None]
